FAERS Safety Report 9951809 (Version 1)
Quarter: 2014Q1

REPORT INFORMATION
  Report Type: Report from Study
  Country: US (occurrence: US)
  Receive Date: 20140304
  Receipt Date: 20140304
  Transmission Date: 20141002
  Serious: No
  Sender: FDA-Public Use
  Company Number: US-ABBVIE-13P-163-1070587-00

PATIENT
  Age: 43 Year
  Sex: Female

DRUGS (3)
  1. HUMIRA [Suspect]
     Indication: COLITIS ULCERATIVE
     Dosage: LOADING DOSE
     Dates: start: 20130317
  2. CLARITIN [Concomitant]
     Indication: HYPERSENSITIVITY
  3. FLONASE [Concomitant]
     Indication: HYPERSENSITIVITY
     Dosage: 1 SQUIRT IN EACH NOSTRIL DAILY
     Route: 045

REACTIONS (1)
  - Vertigo [Not Recovered/Not Resolved]
